FAERS Safety Report 6589959-4 (Version None)
Quarter: 2010Q1

REPORT INFORMATION
  Report Type: 
  Country: None (occurrence: None)
  Receive Date: 20100219
  Receipt Date: 20100205
  Transmission Date: 20100710
  Serious: Yes (Hospitalization, Disabling, Other)
  Sender: FDA-Public Use
  Company Number: PHHY2010ZA03951

PATIENT
  Sex: Male

DRUGS (4)
  1. GLEEVEC [Suspect]
     Dosage: 400 MG, UNK
     Route: 048
     Dates: start: 20050101, end: 20091201
  2. CO-DIOVAN [Concomitant]
     Indication: HYPERTENSION
  3. TEN-BLOKA [Concomitant]
     Indication: HYPERTENSION
  4. PURICOS [Concomitant]
     Indication: GOUT

REACTIONS (12)
  - FISTULA [None]
  - IMMUNOSUPPRESSION [None]
  - IMPAIRED HEALING [None]
  - NEUTROPENIA [None]
  - PLEURAL EFFUSION [None]
  - PLEURAL FISTULA [None]
  - PNEUMOCYSTIS JIROVECI PNEUMONIA [None]
  - PNEUMONIA [None]
  - PYOTHORAX [None]
  - RENAL FAILURE [None]
  - SEPSIS [None]
  - TYPE 2 DIABETES MELLITUS [None]
